FAERS Safety Report 9094235 (Version 1)
Quarter: 2013Q1

REPORT INFORMATION
  Report Type: Other
  Country: GB (occurrence: GB)
  Receive Date: 20130218
  Receipt Date: 20130218
  Transmission Date: 20140127
  Serious: Yes (Other)
  Sender: FDA-Public Use
  Company Number: GB-PERRIGO-13GB001531

PATIENT
  Age: 87 Year
  Sex: Female

DRUGS (2)
  1. IBUPROFEN 16028/0013 200 MG [Suspect]
     Indication: APPLICATION SITE PAIN
     Dosage: 400 MG, QID
     Route: 048
     Dates: start: 20130131, end: 20130204
  2. XARELTO [Suspect]
     Indication: ATRIAL FIBRILLATION
     Dosage: 20 MG, QD
     Route: 048
     Dates: start: 20130116, end: 20130204

REACTIONS (4)
  - Accidental overdose [Unknown]
  - Gastric haemorrhage [Recovering/Resolving]
  - Melaena [Recovering/Resolving]
  - Haemoglobin decreased [Unknown]
